FAERS Safety Report 11205626 (Version 2)
Quarter: 2015Q3

REPORT INFORMATION
  Report Type: Spontaneous
  Country: GB (occurrence: GB)
  Receive Date: 20150622
  Receipt Date: 20150813
  Transmission Date: 20151125
  Serious: Yes (Death, Other)
  Sender: FDA-Public Use
  Company Number: GB-TEVA-570108ACC

PATIENT
  Age: 47 Year
  Sex: Female

DRUGS (7)
  1. CARBOPLATIN. [Suspect]
     Active Substance: CARBOPLATIN
     Indication: LUNG NEOPLASM MALIGNANT
     Route: 042
     Dates: start: 20150115
  2. PREDNISOLONE. [Concomitant]
     Active Substance: PREDNISOLONE
     Route: 048
  3. SERETIDE [Concomitant]
     Active Substance: FLUTICASONE FUROATE\SALMETEROL XINAFOATE
     Dosage: 2 DOSAGE FORMS DAILY;
     Route: 055
  4. TIOTROPIUM [Concomitant]
     Active Substance: TIOTROPIUM
     Route: 055
  5. ZAPONEX [Suspect]
     Active Substance: CLOZAPINE
     Indication: SCHIZOPHRENIA
     Dosage: 150 MG MANE AND 500 MG NOCTE
     Route: 048
     Dates: start: 20090320, end: 20150524
  6. SALBUTAMOL [Concomitant]
     Active Substance: ALBUTEROL
     Route: 055
  7. SERTRALINE [Concomitant]
     Active Substance: SERTRALINE HYDROCHLORIDE
     Indication: DEPRESSION
     Route: 048
     Dates: start: 20140531

REACTIONS (9)
  - Neutropenia [Recovered/Resolved]
  - Platelet count increased [Not Recovered/Not Resolved]
  - Product use issue [Not Recovered/Not Resolved]
  - Neutrophil count increased [Not Recovered/Not Resolved]
  - Antipsychotic drug level increased [Unknown]
  - Thrombocytosis [Recovered/Resolved]
  - Leukopenia [Recovered/Resolved]
  - Small cell lung cancer [Fatal]
  - White blood cell count increased [Recovered/Resolved]

NARRATIVE: CASE EVENT DATE: 20130820
